FAERS Safety Report 6511911-5 (Version None)
Quarter: 2009Q4

REPORT INFORMATION
  Report Type: 
  Country: None (occurrence: None)
  Receive Date: 20091222
  Receipt Date: 20090923
  Transmission Date: 20100525
  Serious: No
  Sender: FDA-Public Use
  Company Number: US-ASTRAZENECA-2009UW17737

PATIENT
  Age: 19937 Day
  Sex: Female
  Weight: 7.3 kg

DRUGS (3)
  1. CRESTOR [Suspect]
     Indication: HYPERCHOLESTEROLAEMIA
     Route: 048
     Dates: start: 20090601
  2. VITAMIN D [Concomitant]
     Indication: VITAMIN D DEFICIENCY
  3. ZIAC [Concomitant]

REACTIONS (1)
  - VISION BLURRED [None]
